FAERS Safety Report 12616903 (Version 4)
Quarter: 2019Q2

REPORT INFORMATION
  Report Type: Report from Study
  Country: MX (occurrence: MX)
  Receive Date: 20160802
  Receipt Date: 20190406
  Transmission Date: 20190711
  Serious: No
  Sender: FDA-Public Use
  Company Number: PHHY2016MX104672

PATIENT
  Sex: Male
  Weight: 55 kg

DRUGS (5)
  1. PANAZECLOX [Concomitant]
     Indication: INSOMNIA
     Dosage: 11 OT, QD
     Route: 048
     Dates: start: 2010
  2. STALEVO [Suspect]
     Active Substance: CARBIDOPA\ENTACAPONE\LEVODOPA
     Indication: PARKINSON^S DISEASE
     Dosage: 1 DF, QD
     Route: 048
  3. STALEVO [Suspect]
     Active Substance: CARBIDOPA\ENTACAPONE\LEVODOPA
     Dosage: 4 DF, QD (ENTACAPONE 150 MG, LEVODOPA 200 MG, CARBIDOPA 37.5 MG)
     Route: 048
     Dates: start: 2012, end: 20190201
  4. MICARDIS [Concomitant]
     Active Substance: TELMISARTAN
     Indication: HYPERTENSION
     Dosage: 40 MG, QD
     Route: 048
     Dates: start: 2010
  5. ASPIRIN PROTECT [Concomitant]
     Active Substance: ASPIRIN
     Indication: INFARCTION
     Dosage: 1 DF, QD
     Route: 048
     Dates: start: 2010

REACTIONS (13)
  - Weight decreased [Not Recovered/Not Resolved]
  - Muscle spasms [Not Recovered/Not Resolved]
  - Pain in extremity [Not Recovered/Not Resolved]
  - Arthralgia [Not Recovered/Not Resolved]
  - Mobility decreased [Recovered/Resolved]
  - Malaise [Unknown]
  - Muscle strain [Not Recovered/Not Resolved]
  - Knee deformity [Not Recovered/Not Resolved]
  - Tremor [Not Recovered/Not Resolved]
  - Body height decreased [Not Recovered/Not Resolved]
  - Hypoaesthesia [Not Recovered/Not Resolved]
  - Foot deformity [Not Recovered/Not Resolved]
  - Gait disturbance [Not Recovered/Not Resolved]

NARRATIVE: CASE EVENT DATE: 2012
